FAERS Safety Report 5256400-3 (Version None)
Quarter: 2007Q1

REPORT INFORMATION
  Report Type: 
  Country: None (occurrence: None)
  Receive Date: 20070306
  Receipt Date: 20070222
  Transmission Date: 20070707
  Serious: Yes (Other)
  Sender: FDA-Public Use
  Company Number: HQWYE576123FEB07

PATIENT
  Age: 56 Year
  Sex: Male

DRUGS (9)
  1. AMIODARONE HCL [Suspect]
     Indication: VENTRICULAR TACHYCARDIA
  2. AMIODARONE HCL [Suspect]
  3. SPIRONOLACTONE [Concomitant]
  4. MEXILETINE HYDROCHLORIDE [Concomitant]
     Indication: VENTRICULAR TACHYCARDIA
  5. MEXILETINE HYDROCHLORIDE [Concomitant]
  6. LOSARTAN POTASSIUM [Concomitant]
  7. DIGOXIN [Concomitant]
  8. FUROSEMIDE [Concomitant]
  9. RAMIPRIL [Concomitant]

REACTIONS (6)
  - CARDIOMEGALY [None]
  - CREPITATIONS [None]
  - HAEMATOCRIT DECREASED [None]
  - HYPOXIA [None]
  - PLEURAL EFFUSION [None]
  - PULMONARY CONGESTION [None]
